FAERS Safety Report 13756380 (Version 1)
Quarter: 2017Q3

REPORT INFORMATION
  Report Type: Spontaneous
  Country: SE (occurrence: SE)
  Receive Date: 20170714
  Receipt Date: 20170714
  Transmission Date: 20171127
  Serious: Yes (Hospitalization)
  Sender: FDA-Public Use
  Company Number: SE-TEVA-785241ISR

PATIENT
  Age: 41 Year
  Sex: Female

DRUGS (5)
  1. LEVAXIN [Suspect]
     Active Substance: LEVOTHYROXINE SODIUM
  2. SERTRALINE [Suspect]
     Active Substance: SERTRALINE HYDROCHLORIDE
  3. FLUANXOL [Suspect]
     Active Substance: FLUPENTIXOL
  4. LITHIONIT [Suspect]
     Active Substance: LITHIUM SULFATE
  5. SEROQUEL [Suspect]
     Active Substance: QUETIAPINE FUMARATE

REACTIONS (2)
  - Suicide attempt [Recovered/Resolved]
  - Toxicity to various agents [Recovered/Resolved]
